FAERS Safety Report 8218594-7 (Version None)
Quarter: 2012Q1

REPORT INFORMATION
  Report Type: 
  Country: None (occurrence: None)
  Receive Date: 20120319
  Receipt Date: 20120314
  Transmission Date: 20120608
  Serious: Yes (Hospitalization)
  Sender: FDA-Public Use
  Company Number: US-BAYER-2011-011317

PATIENT
  Age: 17 Year
  Sex: Female
  Weight: 118 kg

DRUGS (10)
  1. YASMIN [Suspect]
     Indication: PREMENSTRUAL SYNDROME
     Dosage: UNK
     Dates: start: 20080301, end: 20090113
  2. PREDNISONE [Concomitant]
     Dosage: 10 MG, UNK
     Route: 048
     Dates: start: 20081109
  3. YAZ [Suspect]
  4. ALBUTEROL [Concomitant]
     Dosage: UNK
     Dates: start: 20070101
  5. PROMETHAZINE [Concomitant]
     Indication: NAUSEA
     Dosage: 25 MG, PRN
     Route: 048
     Dates: start: 20081129
  6. YAZ [Suspect]
     Indication: PREMENSTRUAL SYNDROME
     Dosage: UNK
     Dates: start: 20080301, end: 20090113
  7. YASMIN [Suspect]
  8. XOPENEX [Concomitant]
     Dosage: UNK
     Dates: start: 20070101
  9. PROMETHAZINE HCL AND CODEINE [Concomitant]
     Dosage: UNK
     Route: 048
     Dates: start: 20081109
  10. PHENAZOPYRIDINE HCL TAB [Concomitant]
     Dosage: 200 MG, BID
     Route: 048
     Dates: start: 20081129

REACTIONS (2)
  - PULMONARY EMBOLISM [None]
  - PAIN [None]
